FAERS Safety Report 5011875-X (Version None)
Quarter: 2006Q2

REPORT INFORMATION
  Report Type: 
  Country: None (occurrence: None)
  Receive Date: 20060526
  Receipt Date: 20060419
  Transmission Date: 20061013
  Serious: Yes (Other)
  Sender: FDA-Public Use
  Company Number: FR-SANOFI-SYNTHELABO-A02200601042

PATIENT
  Sex: Male
  Weight: 62 kg

DRUGS (13)
  1. OXYGEN [Concomitant]
     Indication: RESPIRATORY FAILURE
     Dosage: UNK
     Route: 055
  2. TAHOR [Concomitant]
     Indication: DRUG USE FOR UNKNOWN INDICATION
     Route: 048
     Dates: start: 20040101, end: 20060315
  3. TAHOR [Concomitant]
     Route: 048
     Dates: start: 20060414
  4. ASPIRIN [Concomitant]
     Indication: THROMBOSIS PROPHYLAXIS
     Route: 048
     Dates: start: 20030101
  5. ROCEPHIN [Concomitant]
     Indication: BRONCHITIS
     Dosage: UNK
     Route: 065
     Dates: start: 20060307, end: 20060313
  6. PLAVIX [Suspect]
     Indication: THROMBOSIS PROPHYLAXIS
     Route: 048
     Dates: start: 20060201, end: 20060213
  7. FLECAINIDE ACETATE [Concomitant]
     Indication: DRUG USE FOR UNKNOWN INDICATION
     Dosage: UNK
     Route: 048
     Dates: start: 20060126, end: 20060315
  8. FLECAINIDE ACETATE [Concomitant]
     Dosage: UNK
     Route: 048
     Dates: start: 20060414
  9. TICLID [Concomitant]
     Indication: THROMBOSIS PROPHYLAXIS
     Dosage: UNK
     Route: 054
     Dates: start: 20060213, end: 20060315
  10. DILATRANE [Concomitant]
     Indication: CHRONIC OBSTRUCTIVE PULMONARY DISEASE
     Route: 048
     Dates: start: 20050101
  11. AMLOR [Concomitant]
     Indication: DRUG USE FOR UNKNOWN INDICATION
     Route: 048
     Dates: start: 20040101
  12. LANZOR [Concomitant]
     Indication: DRUG USE FOR UNKNOWN INDICATION
     Route: 048
     Dates: start: 20050101
  13. CORTANCYL [Concomitant]
     Indication: CHRONIC OBSTRUCTIVE PULMONARY DISEASE
     Dosage: UNK
     Route: 048
     Dates: start: 20060201, end: 20060207

REACTIONS (5)
  - AGRANULOCYTOSIS [None]
  - BRONCHITIS [None]
  - DERMATITIS EXFOLIATIVE [None]
  - GENERALISED ERYTHEMA [None]
  - PRURITUS [None]
